FAERS Safety Report 5865830-8 (Version None)
Quarter: 2008Q3

REPORT INFORMATION
  Report Type: 
  Country: None (occurrence: None)
  Receive Date: 20080829
  Receipt Date: 20080826
  Transmission Date: 20090109
  Serious: Yes (Hospitalization)
  Sender: FDA-Public Use
  Company Number: US-ABBOTT-08P-163-0472710-00

PATIENT
  Sex: Female
  Weight: 52.21 kg

DRUGS (5)
  1. HUMIRA [Suspect]
     Indication: RHEUMATOID ARTHRITIS
     Route: 050
     Dates: end: 20080301
  2. HUMIRA [Suspect]
     Route: 050
     Dates: start: 20080401
  3. TYLOX [Concomitant]
     Indication: PAIN
     Route: 048
  4. SERTRALINE [Concomitant]
     Indication: DEPRESSION
     Route: 048
  5. ALPRAZOLAM [Concomitant]
     Indication: ANXIETY
     Route: 048

REACTIONS (9)
  - ALOPECIA [None]
  - COMA [None]
  - LOWER LIMB FRACTURE [None]
  - NAIL INFECTION [None]
  - NERVOUSNESS [None]
  - RIB FRACTURE [None]
  - ROAD TRAFFIC ACCIDENT [None]
  - STRESS [None]
  - WEIGHT DECREASED [None]
